FAERS Safety Report 7445374-2 (Version None)
Quarter: 2011Q2

REPORT INFORMATION
  Report Type: 
  Country: None (occurrence: None)
  Receive Date: 20110429
  Receipt Date: 20100712
  Transmission Date: 20111010
  Serious: No
  Sender: FDA-Public Use
  Company Number: A0872197A

PATIENT
  Sex: Female

DRUGS (1)
  1. ZOFRAN [Suspect]

REACTIONS (3)
  - PALPITATIONS [None]
  - ABDOMINAL DISCOMFORT [None]
  - DYSGEUSIA [None]
